FAERS Safety Report 4989673-2 (Version None)
Quarter: 2006Q2

REPORT INFORMATION
  Report Type: 
  Country: None (occurrence: None)
  Receive Date: 20060426
  Receipt Date: 20060410
  Transmission Date: 20061013
  Serious: Yes (Hospitalization)
  Sender: FDA-Public Use
  Company Number: US200604001787

PATIENT
  Sex: Female

DRUGS (3)
  1. PROZAC [Suspect]
     Indication: DEPRESSION
     Dosage: SEE IMGAE
     Dates: start: 19900101, end: 20040101
  2. PROZAC [Suspect]
     Indication: DEPRESSION
     Dosage: SEE IMGAE
     Dates: start: 20060101, end: 20060101
  3. FLUOXETINE HYDROCHLORIDE (FLUOXETINE HYDROCHLORIDE) CAPSULES [Concomitant]

REACTIONS (6)
  - DECREASED APPETITE [None]
  - DISTURBANCE IN ATTENTION [None]
  - DRUG INEFFECTIVE [None]
  - ORGASM ABNORMAL [None]
  - PNEUMONIA STAPHYLOCOCCAL [None]
  - TEARFULNESS [None]
